FAERS Safety Report 12885489 (Version 1)
Quarter: 2016Q4

REPORT INFORMATION
  Report Type: Spontaneous
  Country: US (occurrence: US)
  Receive Date: 20161026
  Receipt Date: 20161026
  Transmission Date: 20170207
  Serious: Yes (Other)
  Sender: FDA-Public Use
  Company Number: US-PFIZER INC-2016492532

PATIENT
  Age: 58 Year
  Sex: Male

DRUGS (9)
  1. THIOTHIXENE /00099101/ [Concomitant]
     Active Substance: THIOTHIXENE
     Dosage: 5 MG, 1X/DAY REDUCED
  2. LITHIUM. [Interacting]
     Active Substance: LITHIUM
     Dosage: 675 MG, 1X/DAY
  3. LITHIUM. [Interacting]
     Active Substance: LITHIUM
     Dosage: 900 MG, 1X/DAY
  4. THEOPHYLLINE [Concomitant]
     Active Substance: THEOPHYLLINE ANHYDROUS
     Dosage: UNK
  5. DILTIAZEM HCL [Suspect]
     Active Substance: DILTIAZEM HYDROCHLORIDE
     Indication: ANGINA PECTORIS
     Dosage: 30 MG, 3X/DAY
  6. THIOTHIXENE /00099101/ [Concomitant]
     Active Substance: THIOTHIXENE
     Dosage: UNK
  7. LITHIUM. [Interacting]
     Active Substance: LITHIUM
     Dosage: 450 MG, 1X/DAY
  8. LITHIUM. [Interacting]
     Active Substance: LITHIUM
     Dosage: 450 MG, 1X/DAY
  9. NITROGLYCERIN. [Concomitant]
     Active Substance: NITROGLYCERIN
     Indication: ANGINA PECTORIS
     Dosage: AS NEEDED

REACTIONS (4)
  - Muscle rigidity [Recovered/Resolved]
  - Drug interaction [Recovered/Resolved]
  - Parkinsonism [Recovered/Resolved]
  - Musculoskeletal stiffness [Recovered/Resolved]
